FAERS Safety Report 6423322-1 (Version None)
Quarter: 2009Q4

REPORT INFORMATION
  Report Type: 
  Country: None (occurrence: None)
  Receive Date: 20091102
  Receipt Date: 20091026
  Transmission Date: 20100525
  Serious: Yes (Hospitalization)
  Sender: FDA-Public Use
  Company Number: US-ELI_LILLY_AND_COMPANY-US200910006359

PATIENT
  Sex: Female

DRUGS (5)
  1. HUMALOG [Suspect]
     Dosage: 6 U, AS NEEDED
     Dates: start: 20060101
  2. HUMALOG [Suspect]
     Dosage: 3 U, AS NEEDED
     Dates: start: 20060101
  3. HUMALOG MIX 75/25 [Suspect]
     Dosage: 6 U, AS NEEDED
     Dates: start: 20060101
  4. HUMALOG MIX 75/25 [Suspect]
     Dosage: 3 U, AS NEEDED
     Dates: start: 20060101
  5. LANTUS [Concomitant]

REACTIONS (4)
  - CEREBROVASCULAR ACCIDENT [None]
  - COGNITIVE DISORDER [None]
  - COORDINATION ABNORMAL [None]
  - MEMORY IMPAIRMENT [None]
